FAERS Safety Report 21823242 (Version 7)
Quarter: 2023Q2

REPORT INFORMATION
  Report Type: Report from Study
  Country: US (occurrence: US)
  Receive Date: 20230105
  Receipt Date: 20230621
  Transmission Date: 20230721
  Serious: Yes (Hospitalization, Other)
  Sender: FDA-Public Use
  Company Number: US-PFIZER INC-PV202300001410

PATIENT
  Age: 5 Year
  Sex: Male
  Weight: 20 kg

DRUGS (19)
  1. LORLATINIB [Suspect]
     Active Substance: LORLATINIB
     Indication: Glioblastoma
     Dosage: 65 MG, DAILY
     Route: 048
     Dates: start: 20220405
  2. LORLATINIB [Suspect]
     Active Substance: LORLATINIB
     Dosage: 100 MG, DAILY
     Route: 048
  3. LORLATINIB [Suspect]
     Active Substance: LORLATINIB
     Dosage: 75 MG, DAILY
     Route: 048
     Dates: start: 20220405
  4. LORLATINIB [Suspect]
     Active Substance: LORLATINIB
     Dosage: 5 MG, 2 TABLET DAILY
     Route: 048
     Dates: start: 20220405
  5. LORLATINIB [Suspect]
     Active Substance: LORLATINIB
     Dosage: 25 MG, 3X/DAY
     Route: 048
     Dates: start: 20220405
  6. LORLATINIB [Suspect]
     Active Substance: LORLATINIB
     Dosage: 5 MG, 3X/DAY
     Route: 048
     Dates: start: 20220519, end: 20221230
  7. LORLATINIB [Suspect]
     Active Substance: LORLATINIB
     Dosage: 25 MG, 2X/DAY
     Route: 048
     Dates: start: 20220519, end: 20221230
  8. LORLATINIB [Suspect]
     Active Substance: LORLATINIB
     Dosage: 25 MG, 3X/DAY
     Route: 048
     Dates: start: 20221230
  9. SYMMETREL [Concomitant]
     Active Substance: AMANTADINE HYDROCHLORIDE
     Indication: Tremor
     Dosage: 45 MG, 2X/DAY
     Route: 048
     Dates: start: 20220224, end: 20220819
  10. SYMMETREL [Concomitant]
     Active Substance: AMANTADINE HYDROCHLORIDE
     Dosage: 60 MG, 2X/DAY
     Route: 048
     Dates: start: 20220819, end: 20220826
  11. SYMMETREL [Concomitant]
     Active Substance: AMANTADINE HYDROCHLORIDE
     Dosage: 70 MG, 2X/DAY
     Route: 048
     Dates: start: 20220826
  12. ZOFRAN [Concomitant]
     Active Substance: ONDANSETRON HYDROCHLORIDE
     Indication: Nausea
     Dosage: 2 MG, 3X/DAY, SOLUTION
     Route: 048
     Dates: start: 20210525
  13. ZOFRAN [Concomitant]
     Active Substance: ONDANSETRON HYDROCHLORIDE
     Indication: Vomiting
  14. PRAVACHOL [Concomitant]
     Active Substance: PRAVASTATIN SODIUM
     Indication: Hypertriglyceridaemia
     Dosage: 10 MG, DAILY
     Route: 048
     Dates: start: 20220623, end: 20220818
  15. PRAVACHOL [Concomitant]
     Active Substance: PRAVASTATIN SODIUM
     Dosage: 20 MG, DAILY
     Route: 048
     Dates: start: 20220818, end: 20221230
  16. BACTRIM [Concomitant]
     Active Substance: SULFAMETHOXAZOLE\TRIMETHOPRIM
     Indication: Prophylaxis
     Dosage: 60 MG,SOLUTION  BID ON SATURDAY AND SUNDAY
     Route: 048
     Dates: start: 20220618, end: 20221201
  17. MIRALAX [Concomitant]
     Active Substance: POLYETHYLENE GLYCOL 3350
     Indication: Constipation
     Dosage: 0.5-1 CAP FULL POWDER, AS NEEDED
     Route: 048
     Dates: start: 20221103
  18. CRESTOR [Concomitant]
     Active Substance: ROSUVASTATIN CALCIUM
     Indication: Blood cholesterol
     Dosage: 5 MG, DAILY
     Route: 048
     Dates: start: 20221230, end: 20230125
  19. CRESTOR [Concomitant]
     Active Substance: ROSUVASTATIN CALCIUM
     Dosage: 10 MG, DAILY
     Route: 048
     Dates: start: 20230126

REACTIONS (23)
  - Human rhinovirus test positive [Recovered/Resolved]
  - Enterovirus test positive [Recovered/Resolved]
  - Neurotoxicity [Unknown]
  - Memory impairment [Recovered/Resolved]
  - Agitation [Recovered/Resolved]
  - Hypertriglyceridaemia [Recovered/Resolved]
  - Peripheral swelling [Recovered/Resolved]
  - Balance disorder [Unknown]
  - Anaemia [Recovered/Resolved]
  - Hyperglycaemia [Recovered/Resolved]
  - Oedema [Recovered/Resolved]
  - Hypercholesterolaemia [Recovered/Resolved]
  - Constipation [Not Recovered/Not Resolved]
  - Alanine aminotransferase increased [Recovered/Resolved]
  - Gastrointestinal viral infection [Recovered/Resolved]
  - Upper respiratory tract infection [Recovered/Resolved]
  - COVID-19 [Recovered/Resolved]
  - Hypermagnesaemia [Recovered/Resolved]
  - Otitis externa [Recovered/Resolved]
  - Tachycardia [Recovering/Resolving]
  - Hypersomnia [Unknown]
  - Pyrexia [Unknown]
  - Hypersomnia [Recovering/Resolving]

NARRATIVE: CASE EVENT DATE: 20220421
